FAERS Safety Report 8836398 (Version 17)
Quarter: 2013Q3

REPORT INFORMATION
  Report Type: Spontaneous
  Country: US (occurrence: US)
  Receive Date: 20121011
  Receipt Date: 20130912
  Transmission Date: 20140515
  Serious: Yes (Other)
  Sender: FDA-Public Use
  Company Number: US-009507513-1210USA004642

PATIENT
  Sex: Male

DRUGS (8)
  1. PEGINTRON [Suspect]
     Indication: HEPATITIS C
     Dosage: UNK, REDIPEN
     Dates: start: 20121001
  2. PEGINTRON [Suspect]
     Dosage: UNK,  REDIPEN
     Dates: end: 201212
  3. PEGINTRON [Suspect]
     Dosage: UNK, REDIPEN
     Dates: end: 20130415
  4. REBETOL [Suspect]
     Indication: HEPATITIS C
     Dosage: 600 MG, BID
     Route: 048
     Dates: start: 20121001
  5. REBETOL [Suspect]
     Dosage: 400 MG, BID
     Route: 048
     Dates: start: 2012
  6. REBETOL [Suspect]
     Dosage: 1200 MG, QD
     Route: 048
     Dates: end: 201212
  7. REBETOL [Suspect]
     Dosage: UNK
     Route: 048
     Dates: end: 20130415
  8. BENICAR [Concomitant]
     Indication: BLOOD PRESSURE

REACTIONS (65)
  - Aphonia [Unknown]
  - Hepatic cirrhosis [Unknown]
  - Injection site reaction [Unknown]
  - Vomiting [Unknown]
  - Dyspepsia [Unknown]
  - Dyspepsia [Unknown]
  - Nausea [Unknown]
  - Respiratory disorder [Unknown]
  - Haemorrhage [Unknown]
  - Dry skin [Unknown]
  - Decreased appetite [Unknown]
  - Fatigue [Unknown]
  - Nephrolithiasis [Unknown]
  - Poor quality sleep [Unknown]
  - Arthralgia [Unknown]
  - Arthritis [Unknown]
  - Road traffic accident [Unknown]
  - Rash [Unknown]
  - Pruritus [Unknown]
  - Skin disorder [Unknown]
  - Hypersensitivity [Unknown]
  - Epistaxis [Unknown]
  - Influenza like illness [Unknown]
  - Nausea [Unknown]
  - Pruritus [Unknown]
  - Musculoskeletal disorder [Unknown]
  - Rash [Unknown]
  - Rash pruritic [Unknown]
  - Pyrexia [Recovered/Resolved]
  - Epistaxis [Unknown]
  - Rash [Unknown]
  - Pruritus [Unknown]
  - Rash [Unknown]
  - Pruritus [Unknown]
  - Platelet count decreased [Unknown]
  - Influenza like illness [Unknown]
  - Urticaria [Unknown]
  - Somnolence [Unknown]
  - Rash generalised [Unknown]
  - Rash pruritic [Unknown]
  - Thrombocytopenia [Recovered/Resolved]
  - Rash [Unknown]
  - Pruritus [Unknown]
  - Rash [Not Recovered/Not Resolved]
  - Platelet count decreased [Unknown]
  - Injection site bruising [Unknown]
  - Injection site reaction [Unknown]
  - Rash [Unknown]
  - Contusion [Recovered/Resolved]
  - Contusion [Unknown]
  - Rash [Unknown]
  - Diarrhoea [Unknown]
  - Malaise [Unknown]
  - Diarrhoea [Unknown]
  - Memory impairment [Unknown]
  - Rash generalised [Unknown]
  - Dyspnoea [Unknown]
  - Sinus disorder [Unknown]
  - Rhinitis [Unknown]
  - Dysphagia [Unknown]
  - Red blood cell count decreased [Unknown]
  - White blood cell count decreased [Unknown]
  - Platelet count decreased [Unknown]
  - Tremor [Unknown]
  - Tremor [Unknown]
